FAERS Safety Report 8092651-0 (Version None)
Quarter: 2012Q1

REPORT INFORMATION
  Report Type: 
  Country: None (occurrence: None)
  Receive Date: 20120130
  Receipt Date: 20120130
  Transmission Date: 20120608
  Serious: Yes (Life-Threatening)
  Sender: FDA-Public Use
  Company Number: None

PATIENT
  Age: 40 Year
  Sex: Male
  Weight: 96.4 kg

DRUGS (1)
  1. CIPROFLOXACIN [Suspect]
     Indication: EAR INFECTION
     Dosage: 500 MG BID PO
     Route: 048
     Dates: start: 20111201, end: 20111201

REACTIONS (8)
  - HYPOAESTHESIA ORAL [None]
  - DYSPHAGIA [None]
  - ANAPHYLACTIC REACTION [None]
  - FLUSHING [None]
  - SWELLING FACE [None]
  - DYSPNOEA [None]
  - ERYTHEMA [None]
  - PHARYNGEAL OEDEMA [None]
